FAERS Safety Report 18186527 (Version 1)
Quarter: 2020Q3

REPORT INFORMATION
  Report Type: Spontaneous
  Country: US (occurrence: US)
  Receive Date: 20200824
  Receipt Date: 20200824
  Transmission Date: 20201103
  Serious: No
  Sender: FDA-Public Use
  Company Number: US-BIOGEN-2019BI00751860

PATIENT
  Age: 56 Year
  Sex: Female

DRUGS (3)
  1. TECFIDERA [Suspect]
     Active Substance: DIMETHYL FUMARATE
     Indication: MULTIPLE SCLEROSIS
     Dosage: THERAPY 6/8/19: 120 MG BY MOUTH TWICE DAILY FOR 7 DAYS THEN 240 MG BY MOUTH TWICE DAILY THEREAFTER.
     Route: 048
     Dates: start: 20190608
  2. TECFIDERA [Suspect]
     Active Substance: DIMETHYL FUMARATE
     Dosage: THERAPY 6/8/19: 120 MG BY MOUTH TWICE DAILY FOR 7 DAYS THEN 240 MG BY MOUTH TWICE DAILY THEREAFTER.
     Route: 048
     Dates: start: 20190614
  3. TECFIDERA [Suspect]
     Active Substance: DIMETHYL FUMARATE
     Route: 048
     Dates: start: 20190607

REACTIONS (8)
  - Gastrointestinal disorder [Unknown]
  - Influenza like illness [Recovered/Resolved]
  - Hot flush [Unknown]
  - Nausea [Unknown]
  - Abdominal discomfort [Unknown]
  - Diarrhoea [Unknown]
  - Pruritus [Unknown]
  - Flushing [Unknown]

NARRATIVE: CASE EVENT DATE: 20190608
